FAERS Safety Report 8716255 (Version 3)
Quarter: 2013Q4

REPORT INFORMATION
  Report Type: Report from Study
  Country: JP (occurrence: JP)
  Receive Date: 20120810
  Receipt Date: 20131101
  Transmission Date: 20140711
  Serious: Yes (Other)
  Sender: FDA-Public Use
  Company Number: JP-009507513-1207JPN012689

PATIENT
  Age: 61 Year
  Sex: Female
  Weight: 46 kg

DRUGS (11)
  1. PEGINTRON [Suspect]
     Indication: HEPATITIS C
     Dosage: 1.5 MICROGRAM PER KILOGRAM, QW
     Route: 058
     Dates: start: 20120514, end: 20120529
  2. PEGINTRON [Suspect]
     Dosage: 1.1 MICROGRAM PER KILOGRAM, QW
     Route: 058
     Dates: start: 20120529, end: 20120625
  3. PEGINTRON [Suspect]
     Dosage: 1.5 MICROGRAM PER KILOGRAM, QW
     Route: 058
     Dates: start: 20120626
  4. REBETOL [Suspect]
     Indication: HEPATITIS C
     Dosage: 400 MG, QD
     Route: 048
     Dates: start: 20120514, end: 20120702
  5. REBETOL [Suspect]
     Dosage: 200 MG, QD
     Route: 048
     Dates: start: 20120703
  6. TELAVIC [Suspect]
     Indication: HEPATITIS C
     Dosage: 1500 MG, QD
     Route: 048
     Dates: start: 20120514, end: 20120806
  7. URSO [Concomitant]
     Indication: HEPATITIS C
     Dosage: 600 MG, QD
     Route: 048
  8. SEIBULE [Concomitant]
     Indication: DIABETES MELLITUS
     Dosage: 100 MG, QD
     Route: 048
     Dates: end: 20120515
  9. SEIBULE [Concomitant]
     Dosage: 100 MG, QD
     Route: 048
  10. SHAKUYAKU-KANZO-TO [Concomitant]
     Dosage: 2.5 G, PRN
     Route: 048
  11. ALDACTONE A [Concomitant]
     Indication: OEDEMA
     Dosage: 25 MG, QD
     Route: 048
     Dates: start: 20120703

REACTIONS (1)
  - Neutropenia [Recovering/Resolving]
